FAERS Safety Report 10373196 (Version 1)
Quarter: 2014Q3

REPORT INFORMATION
  Report Type: Spontaneous
  Country: US (occurrence: US)
  Receive Date: 20140808
  Receipt Date: 20140808
  Transmission Date: 20150326
  Serious: Yes (Hospitalization)
  Sender: FDA-Public Use
  Company Number: US-BRISTOL-MYERS SQUIBB COMPANY-20168985

PATIENT
  Age: 53 Year
  Sex: Female
  Weight: 63.49 kg

DRUGS (4)
  1. VAGIFEM [Concomitant]
     Active Substance: ESTRADIOL
  2. SPRYCEL [Suspect]
     Active Substance: DASATINIB
     Indication: CHRONIC MYELOID LEUKAEMIA
     Dosage: FREQUENCY 1ST WK: EVERY OTHER DAY,2ND WK: DAILY
     Dates: start: 201312
  3. ESTRADIOL. [Concomitant]
     Active Substance: ESTRADIOL
  4. AUGMENTIN [Concomitant]
     Active Substance: AMOXICILLIN\CLAVULANATE POTASSIUM

REACTIONS (2)
  - Nail bed infection [Unknown]
  - Sinusitis [Unknown]
